FAERS Safety Report 18535783 (Version 1)
Quarter: 2020Q4

REPORT INFORMATION
  Report Type: Spontaneous
  Country: CA (occurrence: CA)
  Receive Date: 20201123
  Receipt Date: 20201123
  Transmission Date: 20210114
  Serious: Yes (Hospitalization, Other)
  Sender: FDA-Public Use
  Company Number: CA-SAMSUNG BIOEPIS-SB-2020-34841

PATIENT
  Age: 46 Year
  Sex: Female

DRUGS (2)
  1. ENTOCORT [Concomitant]
     Active Substance: BUDESONIDE
     Indication: PRODUCT USED FOR UNKNOWN INDICATION
     Dosage: CAPSULE, SUSTAINED RELEASE
     Route: 065
  2. INFLIXIMAB [Suspect]
     Active Substance: INFLIXIMAB
     Indication: CROHN^S DISEASE
     Route: 042

REACTIONS (8)
  - Intentional product use issue [Recovered/Resolved]
  - Arthritis [Recovered/Resolved]
  - Heart rate increased [Recovered/Resolved]
  - Pneumonia [Recovered/Resolved]
  - Condition aggravated [Recovered/Resolved]
  - Therapeutic response shortened [Recovered/Resolved]
  - Gastroenteritis [Recovered/Resolved]
  - Off label use [Recovered/Resolved]
